FAERS Safety Report 4316943-3 (Version None)
Quarter: 2004Q1

REPORT INFORMATION
  Report Type: 
  Country: None (occurrence: None)
  Receive Date: 20040312
  Receipt Date: 20040301
  Transmission Date: 20041129
  Serious: Yes (Other)
  Sender: FDA-Public Use
  Company Number: US-JNJFOC-20040300337

PATIENT
  Age: 49 Year
  Sex: 0

DRUGS (2)
  1. REMICADE [Suspect]
     Indication: RHEUMATOID ARTHRITIS
     Dosage: 200 MG, INTRAVENOUS
     Route: 042
     Dates: start: 20040226
  2. ENBREL [Suspect]
     Indication: RHEUMATOID ARTHRITIS
     Dates: end: 20040201

REACTIONS (5)
  - CONFUSIONAL STATE [None]
  - CONVULSION [None]
  - CSF WHITE BLOOD CELL COUNT INCREASED [None]
  - HERPES SIMPLEX [None]
  - INFUSION RELATED REACTION [None]
